FAERS Safety Report 5918010-1 (Version None)
Quarter: 2008Q4

REPORT INFORMATION
  Report Type: 
  Country: None (occurrence: None)
  Receive Date: 20081014
  Receipt Date: 20081008
  Transmission Date: 20090506
  Serious: Yes (Hospitalization, Other)
  Sender: FDA-Public Use
  Company Number: US-RANBAXY-2006US-03256

PATIENT

DRUGS (3)
  1. ISOTRETINOIN [Suspect]
     Indication: ACNE
     Dosage: 40 MG, BID
     Route: 048
     Dates: start: 20060202, end: 20060313
  2. ISOTRETINOIN [Suspect]
     Indication: DRUG USE FOR UNKNOWN INDICATION
     Dosage: UNK
     Dates: end: 19870101
  3. LOVASTATIN [Concomitant]
     Indication: DRUG USE FOR UNKNOWN INDICATION

REACTIONS (6)
  - COMA [None]
  - EPISTAXIS [None]
  - HEMIPLEGIA [None]
  - ISCHAEMIC STROKE [None]
  - MEMORY IMPAIRMENT [None]
  - SPEECH DISORDER [None]
